FAERS Safety Report 12137218 (Version 1)
Quarter: 2016Q1

REPORT INFORMATION
  Report Type: Spontaneous
  Country: US (occurrence: US)
  Receive Date: 20160302
  Receipt Date: 20160302
  Transmission Date: 20160526
  Serious: No
  Sender: FDA-Public Use
  Company Number: US-INSYS THERAPEUTICS, INC-INS201508-000348

PATIENT
  Sex: Female
  Weight: 58.97 kg

DRUGS (3)
  1. FENTANYL PATCHES [Concomitant]
     Active Substance: FENTANYL
  2. PREDNISONE. [Concomitant]
     Active Substance: PREDNISONE
  3. SUBSYS [Suspect]
     Active Substance: FENTANYL
     Indication: SPINAL PAIN
     Dates: start: 2015

REACTIONS (2)
  - Product quality issue [Unknown]
  - Paraesthesia oral [Unknown]

NARRATIVE: CASE EVENT DATE: 2015
